FAERS Safety Report 7940903-4 (Version None)
Quarter: 2011Q4

REPORT INFORMATION
  Report Type: 
  Country: None (occurrence: None)
  Receive Date: 20111122
  Receipt Date: 20111110
  Transmission Date: 20120403
  Serious: Yes (Other)
  Sender: FDA-Public Use
  Company Number: 1105153

PATIENT

DRUGS (1)
  1. CARBOPLATIN [Suspect]

REACTIONS (2)
  - ANAPHYLACTIC SHOCK [None]
  - ACCIDENTAL EXPOSURE [None]
